FAERS Safety Report 9467489 (Version 1)
Quarter: 2013Q3

REPORT INFORMATION
  Report Type: Spontaneous
  Country: US (occurrence: None)
  Receive Date: 20130819
  Receipt Date: 20130819
  Transmission Date: 20140515
  Serious: Yes (Hospitalization)
  Sender: FDA-Public Use
  Company Number: None

PATIENT
  Age: 55 Year
  Sex: Female
  Weight: 75 kg

DRUGS (8)
  1. BEVACIZUMAB (RHUMAB VEGF) (704865) [Suspect]
  2. CARBOPLATIN [Suspect]
  3. PACLITAXEL (TAXOL) [Suspect]
  4. PROVENTIL [Concomitant]
  5. GUAIFENESIN AC [Concomitant]
  6. ONDANSETRON [Concomitant]
  7. PROCHLORPERAZINE MALEATE [Concomitant]
  8. SYMBICORT [Concomitant]

REACTIONS (3)
  - Haemoptysis [None]
  - Epistaxis [None]
  - Therapeutic embolisation [None]
